FAERS Safety Report 13291901 (Version 2)
Quarter: 2017Q1

REPORT INFORMATION
  Report Type: Spontaneous
  Country: JP (occurrence: JP)
  Receive Date: 20170303
  Receipt Date: 20170314
  Transmission Date: 20170428
  Serious: Yes (Hospitalization)
  Sender: FDA-Public Use
  Company Number: JP-GLAXOSMITHKLINE-JP2016JPN119383

PATIENT
  Age: 60 Year
  Sex: Male
  Weight: 62 kg

DRUGS (15)
  1. ZYPREXA [Concomitant]
     Active Substance: OLANZAPINE
     Dosage: 5 MG, QD
  2. OMEPRAZOLE. [Concomitant]
     Active Substance: OMEPRAZOLE
     Dosage: 20 MG, 1D
  3. LAMICTAL [Suspect]
     Active Substance: LAMOTRIGINE
     Dosage: 300 MG, QD
     Route: 048
     Dates: end: 20160813
  4. VALERIN [Suspect]
     Active Substance: VALPROATE SODIUM
     Dosage: 200 G, BID
     Route: 048
     Dates: start: 20160728
  5. DEPAS [Concomitant]
     Active Substance: ETIZOLAM
     Dosage: 1 MG, QD
  6. TRIHEXYPHENIDYL HYDROCHLORIDE. [Concomitant]
     Active Substance: TRIHEXYPHENIDYL HYDROCHLORIDE
     Dosage: 2 MG, 1D
  7. DEPAKENE [Concomitant]
     Active Substance: VALPROIC ACID
     Indication: BIPOLAR DISORDER
     Dosage: 400 MG, 1D
     Route: 048
     Dates: start: 20160729
  8. ABILIFY [Concomitant]
     Active Substance: ARIPIPRAZOLE
  9. LITHIUM CARBONATE. [Concomitant]
     Active Substance: LITHIUM CARBONATE
     Dosage: UNK
  10. TETRAMIDE [Concomitant]
     Active Substance: MIANSERIN
     Dosage: 30 MG, QD
  11. AMOXAN [Concomitant]
     Active Substance: AMOXAPINE
     Dosage: UNK
  12. TASMOLIN [Concomitant]
     Active Substance: BIPERIDEN
     Dosage: 3 MG, TID
  13. LEXOTAN [Concomitant]
     Active Substance: BROMAZEPAM
     Dosage: 4 MG, BID
  14. LAMICTAL [Suspect]
     Active Substance: LAMOTRIGINE
     Indication: BIPOLAR DISORDER
     Dosage: UNK
     Route: 048
  15. EFFORTIL [Concomitant]
     Active Substance: ETILEFRINE HYDROCHLORIDE
     Dosage: 2 DF, BID

REACTIONS (5)
  - Feeling abnormal [Recovered/Resolved]
  - Prescribed overdose [Unknown]
  - Abnormal behaviour [Recovered/Resolved]
  - Malaise [Unknown]
  - Amnesia [Recovered/Resolved]

NARRATIVE: CASE EVENT DATE: 20160715
